FAERS Safety Report 7635219-X (Version None)
Quarter: 2011Q3

REPORT INFORMATION
  Report Type: 
  Country: None (occurrence: None)
  Receive Date: 20110726
  Receipt Date: 20080821
  Transmission Date: 20111222
  Serious: Yes (Death, Other)
  Sender: FDA-Public Use
  Company Number: US-BAYER-200824878NA

PATIENT
  Age: 43 Year
  Sex: Female

DRUGS (32)
  1. OPTIMARK [Suspect]
     Indication: NUCLEAR MAGNETIC RESONANCE IMAGING
  2. PROHANCE [Suspect]
     Indication: NUCLEAR MAGNETIC RESONANCE IMAGING
  3. GADOLINIUM IN UNSPECIFIED DRUG [Suspect]
     Indication: PRODUCT USED FOR UNKNOWN INDICATION
     Dosage: UNK
     Dates: start: 20050318
  4. TRAZODONE HCL [Concomitant]
     Indication: SLEEP DISORDER THERAPY
     Dosage: 50 MG, PRN
  5. LISINOPRIL [Concomitant]
     Indication: BLOOD PRESSURE MANAGEMENT
     Dosage: 10 MG, QD
  6. PERCOCET [Concomitant]
     Indication: PAIN
     Dosage: 325 MG/5MG/ 2 WHEN NEEDED FOR PAIN
  7. ATORVASTATIN [Concomitant]
     Dosage: 20 MG, UNK
  8. VENOFER [Concomitant]
     Dosage: 1 MG, NP
  9. MULTIHANCE [Suspect]
     Indication: ANGIOGRAM
  10. LORTAB [Concomitant]
     Indication: PAIN
     Dosage: 500MG/10MG, PRN
  11. PRILOSEC [Concomitant]
     Indication: ULCER
     Dosage: 2 TABLETS, QD
  12. RENAGEL [Concomitant]
     Indication: BLOOD PHOSPHORUS ABNORMAL
     Dosage: 800 MG/ 5 WITH MEALS, 3 WITH SNACKS
  13. PANTOPRAZOLE [Concomitant]
     Dosage: 40 MG, UNK
  14. OPTIMARK [Suspect]
     Indication: ANGIOGRAM
  15. OMNISCAN [Suspect]
     Indication: ANGIOGRAM
     Dosage: 40 ML, UNK
     Dates: start: 20040719
  16. FERROUS SULFATE TAB [Concomitant]
     Indication: MINERAL SUPPLEMENTATION
     Dosage: UNK
     Dates: start: 20040701
  17. SEVELAMER [Concomitant]
     Dosage: 800 MG, UNK
  18. EPO [Concomitant]
     Dosage: UNK
     Dates: start: 20040616
  19. MULTIHANCE [Suspect]
     Indication: NUCLEAR MAGNETIC RESONANCE IMAGING
  20. NEPHRO-VITE RX [Concomitant]
     Dosage: UNK UNK, QD
  21. METOPROLOL SUCCINATE [Concomitant]
     Dosage: 50 MG, UNK
  22. MAGNEVIST [Suspect]
     Indication: NUCLEAR MAGNETIC RESONANCE IMAGING
     Dosage: 56.04 ML, UNK
     Dates: start: 20060207
  23. MAGNEVIST [Suspect]
     Dosage: 40 ML
     Dates: start: 20060519
  24. OMNISCAN [Suspect]
     Indication: NUCLEAR MAGNETIC RESONANCE IMAGING
     Dosage: 40 ML, UNK
     Dates: start: 20050316
  25. PROHANCE [Suspect]
     Indication: ANGIOGRAM
  26. ACETYLSALICYLIC ACID SRT [Concomitant]
     Indication: THROMBOSIS PROPHYLAXIS
     Dosage: 81 MG, QD
  27. HYDROXYZINE HCL [Concomitant]
     Indication: PRURITUS
     Dosage: 26 MG, EVERY 6 HOURS
  28. EPOGEN [Concomitant]
     Dosage: UNK
     Dates: start: 20060102
  29. MAGNEVIST [Suspect]
     Indication: ANGIOGRAM
     Dosage: UNK UNK, ONCE
     Dates: start: 20051206
  30. COUMADIN [Concomitant]
     Indication: THROMBOSIS PROPHYLAXIS
     Dosage: 4 MG WED AND SUN; 5 MG ON MONDAYS
  31. PROZAC [Concomitant]
     Indication: PAIN
     Dosage: 1 TABLET, QD
  32. SENSIPAR [Concomitant]
     Indication: BLOOD CALCIUM ABNORMAL
     Dosage: 30 MG, TIW

REACTIONS (7)
  - EMOTIONAL DISTRESS [None]
  - INJURY [None]
  - PAIN [None]
  - GAIT DISTURBANCE [None]
  - NEPHROGENIC SYSTEMIC FIBROSIS [None]
  - ANHEDONIA [None]
  - MOBILITY DECREASED [None]
